FAERS Safety Report 5557210-X (Version None)
Quarter: 2007Q4

REPORT INFORMATION
  Report Type: 
  Country: None (occurrence: None)
  Receive Date: 20071214
  Receipt Date: 20071203
  Transmission Date: 20080405
  Serious: Yes (Life-Threatening)
  Sender: FDA-Public Use
  Company Number: CA-NOVOPROD-269151

PATIENT
  Age: 78 Year
  Sex: Male
  Weight: 65 kg

DRUGS (5)
  1. NIASTASE [Suspect]
     Indication: HAEMORRHAGE
     Dosage: 90 UG/KG TOTAL: 9.6 MG
     Route: 042
     Dates: start: 20070907, end: 20070907
  2. RED BLOOD CELLS [Concomitant]
     Indication: HAEMORRHAGE
     Dates: start: 20060907, end: 20060918
  3. FRESH FROZEN PLASMA [Concomitant]
     Indication: HAEMORRHAGE
     Dates: start: 20060907, end: 20060918
  4. PLATELETS [Concomitant]
     Indication: HAEMORRHAGE
     Dates: start: 20060907, end: 20060912
  5. ALBUMIN (HUMAN) [Concomitant]
     Indication: HAEMORRHAGE
     Dates: start: 20060909, end: 20060917

REACTIONS (5)
  - ARTERIOSCLEROSIS [None]
  - CEREBRAL INFARCTION [None]
  - MULTI-ORGAN FAILURE [None]
  - RENAL FAILURE [None]
  - SEPSIS [None]
